FAERS Safety Report 10222729 (Version 3)
Quarter: 2014Q2

REPORT INFORMATION
  Report Type: Spontaneous
  Country: US (occurrence: US)
  Receive Date: 20140606
  Receipt Date: 20140613
  Transmission Date: 20141212
  Serious: Yes (Death, Hospitalization)
  Sender: FDA-Public Use
  Company Number: US-PFIZER INC-2014152787

PATIENT
  Age: 66 Year
  Sex: Male
  Weight: 120.5 kg

DRUGS (14)
  1. IBUPROFEN [Suspect]
     Dosage: 400 MG ONCE EVERY 4 HOURS (AS
     Route: 065
  2. XARELTO [Suspect]
     Indication: THROMBOSIS PROPHYLAXIS
     Dosage: 20 MG, 1X/DAY
     Route: 048
  3. XARELTO [Suspect]
     Indication: HIP ARTHROPLASTY
  4. TRAMADOL [Concomitant]
     Dosage: 50 MG, AS NEEDED
     Route: 065
  5. RANITIDINE [Concomitant]
     Dosage: 300 MG
     Route: 065
  6. MEMANTINE [Concomitant]
     Dosage: 10 MG, 2X/DAY
     Route: 065
  7. LORAZEPAM [Concomitant]
     Dosage: 1MG,3X/DAY
     Route: 065
  8. LEVETIRACETAM [Concomitant]
     Dosage: 500MG,2X/DAY
     Route: 065
  9. NORCO [Concomitant]
     Dosage: 10-325 MG AS NECESSARY
     Route: 048
  10. DULOXETINE [Concomitant]
     Dosage: 60MG,2X/DAY
     Route: 048
  11. DOXEPIN [Concomitant]
     Dosage: 25 MG
     Route: 065
  12. DONEPEZIL [Concomitant]
     Dosage: 5 MG
     Route: 065
  13. CYCLOBENZAPRINE [Concomitant]
     Dosage: 50 MG, 3 X/DAY
     Route: 065
  14. CITALOPRAM [Concomitant]
     Route: 065

REACTIONS (4)
  - Splenic haematoma [Fatal]
  - Shock haemorrhagic [Fatal]
  - Atelectasis [Unknown]
  - Haemoglobin decreased [Not Recovered/Not Resolved]
